FAERS Safety Report 10387687 (Version 1)
Quarter: 2014Q3

REPORT INFORMATION
  Report Type: Spontaneous
  Country: CN (occurrence: CN)
  Receive Date: 20140815
  Receipt Date: 20140815
  Transmission Date: 20150326
  Serious: Yes (Hospitalization)
  Sender: FDA-Public Use
  Company Number: CN-JNJFOC-20140806037

PATIENT
  Age: 37 Year
  Sex: Male

DRUGS (1)
  1. INVEGA SUSTENNA [Suspect]
     Active Substance: PALIPERIDONE PALMITATE
     Indication: PANIC DISORDER
     Route: 030
     Dates: start: 20130603, end: 20130814

REACTIONS (13)
  - Asthenia [Recovered/Resolved]
  - Discomfort [Recovering/Resolving]
  - Pain [Recovered/Resolved]
  - Irritability [Recovered/Resolved]
  - Extrapyramidal disorder [Recovered/Resolved]
  - Decreased appetite [Recovering/Resolving]
  - Anxiety [Recovered/Resolved]
  - Headache [Recovered/Resolved]
  - Tension [Recovered/Resolved]
  - Off label use [Unknown]
  - Fatigue [Recovering/Resolving]
  - Poor quality sleep [Recovered/Resolved]
  - Feeling jittery [Recovering/Resolving]

NARRATIVE: CASE EVENT DATE: 20130603
